FAERS Safety Report 9288798 (Version 8)
Quarter: 2013Q3

REPORT INFORMATION
  Report Type: Report from Study
  Country: AU (occurrence: AU)
  Receive Date: 20130514
  Receipt Date: 20130823
  Transmission Date: 20140515
  Serious: Yes (Hospitalization, Other)
  Sender: FDA-Public Use
  Company Number: AU-ASTRAZENECA-2013SE31908

PATIENT
  Age: 845 Month
  Sex: Male
  Weight: 70 kg

DRUGS (8)
  1. ZOLADEX [Suspect]
     Indication: PROSTATE CANCER
     Route: 058
     Dates: start: 20120920
  2. ZOLADEX [Suspect]
     Indication: PROSTATE CANCER
     Route: 058
     Dates: start: 201212
  3. ZOLADEX [Suspect]
     Indication: PROSTATE CANCER
     Route: 058
     Dates: start: 201303
  4. CLOPIDOGREL [Concomitant]
     Indication: CORONARY ARTERY DISEASE
  5. CRESTOR [Concomitant]
     Indication: CORONARY ARTERY DISEASE
  6. ZOLEDRONIC ACID [Concomitant]
  7. LEUPRORELIN ACETATE [Concomitant]
     Dosage: BRAND: ELIGARD
  8. LEUPRORELIN ACETATE [Concomitant]
     Dosage: BRAND: LUCRIN

REACTIONS (22)
  - Syncope [Recovered/Resolved]
  - Feeling abnormal [Recovered/Resolved]
  - Urinary incontinence [Recovered/Resolved]
  - Impaired driving ability [Recovered/Resolved]
  - Appendicitis [Recovered/Resolved]
  - Abdominal pain lower [Recovered/Resolved]
  - Renal pain [Recovered/Resolved]
  - Breast tenderness [Recovered/Resolved]
  - Infection [Recovered/Resolved]
  - Feeling hot [Recovered/Resolved]
  - Agitation [Recovered/Resolved]
  - Hypotension [Recovered/Resolved]
  - Injection site infection [Recovered/Resolved]
  - Rash [Recovered/Resolved]
  - Paraesthesia [Recovered/Resolved]
  - Cystitis [Recovered/Resolved]
  - Localised infection [Recovered/Resolved]
  - Drug effect incomplete [Recovered/Resolved]
  - Hernia [Recovered/Resolved]
  - Implant site discharge [Recovered/Resolved]
  - Hot flush [Recovered/Resolved]
  - Nipple pain [Recovered/Resolved]
